FAERS Safety Report 9816995 (Version 1)
Quarter: 2014Q1

REPORT INFORMATION
  Report Type: Spontaneous
  Country: JP (occurrence: JP)
  Receive Date: 20140114
  Receipt Date: 20140114
  Transmission Date: 20141002
  Serious: Yes (Other)
  Sender: FDA-Public Use
  Company Number: JP-GLAXOSMITHKLINE-B0959516A

PATIENT
  Sex: 0

DRUGS (2)
  1. LAMICTAL [Suspect]
     Indication: EPILEPSY
     Dosage: 100MG TWICE PER DAY
     Route: 064
  2. FOLIC ACID [Concomitant]
     Dosage: .4MG PER DAY
     Route: 064

REACTIONS (3)
  - Foetal growth restriction [Unknown]
  - Selective abortion [Unknown]
  - Foetal exposure during pregnancy [Unknown]
